FAERS Safety Report 17896271 (Version 1)
Quarter: 2020Q2

REPORT INFORMATION
  Report Type: Spontaneous
  Country: US (occurrence: US)
  Receive Date: 20200615
  Receipt Date: 20200615
  Transmission Date: 20200714
  Serious: Yes (Death)
  Sender: FDA-Public Use
  Company Number: None

PATIENT
  Age: 66 Year
  Sex: Male

DRUGS (10)
  1. MORPHINE ER 15MG [Concomitant]
     Active Substance: MORPHINE
  2. METOPROLOL SUCCINATE 100MG [Concomitant]
  3. PANTOPRAZOLE 40MG [Concomitant]
     Active Substance: PANTOPRAZOLE SODIUM
  4. ATORVASTATIN 40MG [Concomitant]
     Active Substance: ATORVASTATIN
  5. PIFELTRO [Suspect]
     Active Substance: DORAVIRINE
     Indication: HIV INFECTION
     Route: 048
  6. POTASSIUM CHLORIDE 8MEQ ER [Concomitant]
  7. SPIRONOLACTONE 50MG [Concomitant]
     Active Substance: SPIRONOLACTONE
  8. ACYCLOVIR 400MG [Concomitant]
     Active Substance: ACYCLOVIR
  9. BIKTARVY [Concomitant]
     Active Substance: BICTEGRAVIR SODIUM\EMTRICITABINE\TENOFOVIR ALAFENAMIDE FUMARATE
  10. POLYETHYLENE GLYCOL [Concomitant]
     Active Substance: POLYETHYLENE GLYCOLS

REACTIONS (1)
  - Death [None]
